FAERS Safety Report 9532144 (Version 1)
Quarter: 2013Q3

REPORT INFORMATION
  Report Type: Report from Study
  Country: CO (occurrence: CO)
  Receive Date: 20130918
  Receipt Date: 20130918
  Transmission Date: 20140515
  Serious: Yes (Death)
  Sender: FDA-Public Use
  Company Number: CO-ABBVIE-13P-036-1148142-00

PATIENT
  Age: 85 Year
  Sex: Male
  Weight: 67 kg

DRUGS (1)
  1. ZEMPLAR [Suspect]
     Indication: HYPERPARATHYROIDISM SECONDARY
     Dates: start: 20130515, end: 20130605

REACTIONS (1)
  - Intra-abdominal haemorrhage [Fatal]
